FAERS Safety Report 4332025-9 (Version None)
Quarter: 2004Q2

REPORT INFORMATION
  Report Type: 
  Country: None (occurrence: None)
  Receive Date: 20040405
  Receipt Date: 20040325
  Transmission Date: 20050107
  Serious: Yes (Other)
  Sender: FDA-Public Use
  Company Number: PHBS2004GR04147

PATIENT
  Age: 24 Year
  Sex: Female

DRUGS (1)
  1. DESFERRIOXAMINE MESYLATE [Suspect]
     Indication: THALASSAEMIA BETA
     Dosage: 2500 MG/D FOR 5 D/WK
     Route: 058

REACTIONS (5)
  - CARDIAC OUTPUT INCREASED [None]
  - CHORDAE TENDINAE RUPTURE [None]
  - DILATATION ATRIAL [None]
  - DILATATION VENTRICULAR [None]
  - MITRAL VALVE INCOMPETENCE [None]
